FAERS Safety Report 5314085-1 (Version None)
Quarter: 2007Q2

REPORT INFORMATION
  Report Type: 
  Country: None (occurrence: None)
  Receive Date: 20070501
  Receipt Date: 20070420
  Transmission Date: 20071010
  Serious: Yes (Hospitalization)
  Sender: FDA-Public Use
  Company Number: GR-GILEAD-2007-0011928

PATIENT
  Sex: Male
  Weight: 92 kg

DRUGS (1)
  1. HEPSERA [Suspect]
     Indication: HEPATITIS B VIRUS
     Route: 048
     Dates: start: 20020101

REACTIONS (5)
  - BRONCHOSPASM [None]
  - COUGH [None]
  - EOSINOPHILIA [None]
  - HYPOXIA [None]
  - PYREXIA [None]
